FAERS Safety Report 7943008-1 (Version None)
Quarter: 2011Q4

REPORT INFORMATION
  Report Type: 
  Country: None (occurrence: None)
  Receive Date: 20111128
  Receipt Date: 20111118
  Transmission Date: 20120403
  Serious: Yes (Hospitalization, Other)
  Sender: FDA-Public Use
  Company Number: US-ACTELION-A-US2011-51921

PATIENT

DRUGS (4)
  1. TRACLEER [Suspect]
     Indication: PULMONARY ARTERIAL HYPERTENSION
     Dosage: 125
     Route: 048
     Dates: start: 20110510
  2. CALCIUM CHANNEL BLOCKERS [Concomitant]
  3. REVATIO [Concomitant]
  4. TRACLEER [Suspect]
     Dosage: 62.5
     Route: 048
     Dates: start: 20110701

REACTIONS (7)
  - CHEST DISCOMFORT [None]
  - FATIGUE [None]
  - DYSPNOEA EXERTIONAL [None]
  - COUGH [None]
  - CHEST PAIN [None]
  - ELECTROCARDIOGRAM ABNORMAL [None]
  - PULMONARY OEDEMA [None]
